FAERS Safety Report 12464909 (Version 1)
Quarter: 2016Q2

REPORT INFORMATION
  Report Type: Spontaneous
  Country: CO (occurrence: CO)
  Receive Date: 20160614
  Receipt Date: 20160614
  Transmission Date: 20160815
  Serious: Yes (Other)
  Sender: FDA-Public Use
  Company Number: CO-JNJFOC-20160610209

PATIENT
  Sex: Male
  Weight: 45 kg

DRUGS (2)
  1. CARBAMAZEPINE. [Concomitant]
     Active Substance: CARBAMAZEPINE
     Route: 065
  2. RISPERDAL [Suspect]
     Active Substance: RISPERIDONE
     Indication: PRODUCT USED FOR UNKNOWN INDICATION
     Dosage: 1 CENTIMETER AT MORNING, 1 CENTIMETER AT NOON AND UNSPECIFIED DOSE AT NIGHT
     Route: 048

REACTIONS (7)
  - Insomnia [Unknown]
  - Drug dose omission [Unknown]
  - Anxiety [Unknown]
  - Drug dependence [Unknown]
  - Intentional self-injury [Unknown]
  - Inappropriate schedule of drug administration [Unknown]
  - Disorientation [Unknown]
